FAERS Safety Report 10971047 (Version 1)
Quarter: 2015Q1

REPORT INFORMATION
  Report Type: Spontaneous
  Country: US (occurrence: US)
  Receive Date: 20150331
  Receipt Date: 20150331
  Transmission Date: 20150721
  Serious: Yes (Hospitalization)
  Sender: FDA-Public Use
  Company Number: US-BAYER-2015-069453

PATIENT
  Age: 42 Year
  Sex: Female

DRUGS (8)
  1. MEROPENEM. [Concomitant]
     Active Substance: MEROPENEM
  2. TRAMADOL [Concomitant]
     Active Substance: TRAMADOL
  3. ZOFRAN [Concomitant]
     Active Substance: ONDANSETRON HYDROCHLORIDE
  4. LANTUS [Concomitant]
     Active Substance: INSULIN GLARGINE
  5. YAZ [Suspect]
     Active Substance: DROSPIRENONE\ETHINYL ESTRADIOL
  6. INSULIN, REGULAR [Concomitant]
     Active Substance: INSULIN NOS
     Indication: BLOOD GLUCOSE INCREASED
  7. DAPTOMYCIN. [Concomitant]
     Active Substance: DAPTOMYCIN
  8. FLEXERIL [Concomitant]
     Active Substance: CYCLOBENZAPRINE HYDROCHLORIDE

REACTIONS (1)
  - Mesenteric vein thrombosis [None]

NARRATIVE: CASE EVENT DATE: 20110319
